FAERS Safety Report 4364495-4 (Version None)
Quarter: 2004Q2

REPORT INFORMATION
  Report Type: 
  Country: None (occurrence: None)
  Receive Date: 20040513
  Receipt Date: 20040414
  Transmission Date: 20050107
  Serious: Yes (Other)
  Sender: FDA-Public Use
  Company Number: 04-129-0181

PATIENT
  Age: 78 Year
  Sex: Male

DRUGS (5)
  1. ACETYLCYSTEINE [Suspect]
     Indication: CHRONIC OBSTRUCTIVE AIRWAYS DISEASE
     Dosage: 2ML VIA NEBULIZER TID
     Dates: start: 20040401
  2. ALUPENT [Concomitant]
  3. CROMOLYN SODIUM [Concomitant]
  4. ATROVENT [Concomitant]
  5. FLOVENT [Concomitant]

REACTIONS (4)
  - HOARSENESS [None]
  - LUNG DISORDER [None]
  - STOMATITIS [None]
  - TONGUE ULCERATION [None]
